FAERS Safety Report 17013915 (Version 1)
Quarter: 2019Q4

REPORT INFORMATION
  Report Type: Spontaneous
  Country: GB (occurrence: GB)
  Receive Date: 20191111
  Receipt Date: 20191111
  Transmission Date: 20200122
  Serious: Yes (Other)
  Sender: FDA-Public Use
  Company Number: GB-AUROBINDO-AUR-APL-2019-071514

PATIENT
  Age: 32 Year
  Sex: Female
  Weight: 60 kg

DRUGS (1)
  1. ACICLOVIR [Suspect]
     Active Substance: ACYCLOVIR
     Indication: NEURALGIA
     Dosage: 800 MILLIGRAM, EVERY FOUR HOUR
     Route: 048

REACTIONS (4)
  - Oropharyngeal pain [Recovered/Resolved]
  - Somnolence [Recovered/Resolved]
  - Myalgia [Recovered/Resolved]
  - Pyrexia [Recovered/Resolved]
